FAERS Safety Report 7133720-9 (Version None)
Quarter: 2010Q4

REPORT INFORMATION
  Report Type: 
  Country: None (occurrence: None)
  Receive Date: 20101203
  Receipt Date: 20101122
  Transmission Date: 20110411
  Serious: Yes (Hospitalization)
  Sender: FDA-Public Use
  Company Number: US-BIOGENIDEC-2010BI028175

PATIENT
  Age: 40 Year
  Sex: Male

DRUGS (5)
  1. TYSABRI [Suspect]
     Indication: MULTIPLE SCLEROSIS
     Route: 042
     Dates: start: 20070227, end: 20100722
  2. KLONOPIN [Concomitant]
     Indication: VERTIGO
  3. CANABIS [Concomitant]
     Indication: MUSCLE SPASTICITY
  4. CANABIS [Concomitant]
     Indication: VERTIGO
  5. 4-AP [Concomitant]

REACTIONS (3)
  - DEPRESSION [None]
  - MULTIPLE SCLEROSIS [None]
  - PROGRESSIVE MULTIFOCAL LEUKOENCEPHALOPATHY [None]
